FAERS Safety Report 6540302-6 (Version None)
Quarter: 2010Q1

REPORT INFORMATION
  Report Type: 
  Country: None (occurrence: None)
  Receive Date: 20100115
  Receipt Date: 20100107
  Transmission Date: 20100710
  Serious: Yes (Disabling)
  Sender: FDA-Public Use
  Company Number: BR-ASTRAZENECA-2010SE00946

PATIENT
  Age: 80 Year
  Sex: Female
  Weight: 58 kg

DRUGS (1)
  1. SYMBICORT [Suspect]
     Indication: ASTHMA
     Dosage: 320/9 MCG
     Route: 055
     Dates: start: 20091201

REACTIONS (2)
  - CLAVICLE FRACTURE [None]
  - FALL [None]
